APPROVED DRUG PRODUCT: LEVOFLOXACIN
Active Ingredient: LEVOFLOXACIN
Strength: 250MG
Dosage Form/Route: TABLET;ORAL
Application: A201484 | Product #001
Applicant: WATSON LABORATORIES INC
Approved: Nov 22, 2013 | RLD: No | RS: No | Type: DISCN